FAERS Safety Report 16339145 (Version 1)
Quarter: 2019Q2

REPORT INFORMATION
  Report Type: Spontaneous
  Country: US (occurrence: US)
  Receive Date: 20190521
  Receipt Date: 20190521
  Transmission Date: 20190711
  Serious: Yes (Other)
  Sender: FDA-Public Use
  Company Number: PHEH2019US020950

PATIENT

DRUGS (3)
  1. TIZANIDINE. [Suspect]
     Active Substance: TIZANIDINE
     Indication: PROGRESSIVE MULTIPLE SCLEROSIS
     Dosage: UNK
     Route: 065
  2. OCRELIZUMAB. [Suspect]
     Active Substance: OCRELIZUMAB
     Indication: PROGRESSIVE MULTIPLE SCLEROSIS
     Dosage: UNK
     Route: 065
  3. GABAPENTIN. [Suspect]
     Active Substance: GABAPENTIN
     Indication: PROGRESSIVE MULTIPLE SCLEROSIS
     Dosage: UNK
     Route: 065

REACTIONS (6)
  - Muscle atrophy [Unknown]
  - Weight increased [Unknown]
  - Speech disorder [Unknown]
  - Fatigue [Unknown]
  - Muscular weakness [Recovered/Resolved]
  - Pain [Recovered/Resolved]
